FAERS Safety Report 9110626 (Version 1)
Quarter: 2013Q1

REPORT INFORMATION
  Report Type: Spontaneous
  Country: US (occurrence: US)
  Receive Date: 20130219
  Receipt Date: 20130219
  Transmission Date: 20140127
  Serious: No
  Sender: FDA-Public Use
  Company Number: US-BRISTOL-MYERS SQUIBB COMPANY-16591166

PATIENT
  Age: 54 Year
  Sex: Female
  Weight: 117.91 kg

DRUGS (4)
  1. ABATACEPT SUBQ INJECTION 125MG/ML [Suspect]
     Indication: RHEUMATOID ARTHRITIS
     Dosage: 1DF= 125MG/ML?WEEKLY INJECTIONS ON WEDNESDAYS
     Route: 058
  2. PLAQUENIL [Concomitant]
  3. PROTONIX [Concomitant]
  4. PREDNISONE [Concomitant]

REACTIONS (2)
  - Hypoaesthesia oral [Recovering/Resolving]
  - Fatigue [Recovered/Resolved]
